FAERS Safety Report 16650697 (Version 1)
Quarter: 2019Q3

REPORT INFORMATION
  Report Type: Spontaneous
  Country: US (occurrence: US)
  Receive Date: 20190731
  Receipt Date: 20190731
  Transmission Date: 20191004
  Serious: No
  Sender: FDA-Public Use
  Company Number: US-CELGENEUS-USA-20190707776

PATIENT
  Sex: Female

DRUGS (1)
  1. OTEZLA [Suspect]
     Active Substance: APREMILAST
     Indication: PSORIATIC ARTHROPATHY
     Dosage: 60 MILLIGRAM
     Route: 048
     Dates: start: 20190404

REACTIONS (6)
  - Peripheral swelling [Unknown]
  - Rash [Unknown]
  - Pain [Unknown]
  - Swelling [Unknown]
  - Joint swelling [Unknown]
  - Spinal cord oedema [Unknown]

NARRATIVE: CASE EVENT DATE: 2019
